FAERS Safety Report 17897750 (Version 1)
Quarter: 2020Q2

REPORT INFORMATION
  Report Type: Report from Study
  Country: US (occurrence: US)
  Receive Date: 20200616
  Receipt Date: 20200616
  Transmission Date: 20200714
  Serious: Yes (Other)
  Sender: FDA-Public Use
  Company Number: US-TAIHO ONCOLOGY  INC-EU-2020-01686

PATIENT
  Age: 67 Year
  Sex: Male

DRUGS (16)
  1. LONSURF [Suspect]
     Active Substance: TIPIRACIL HYDROCHLORIDE\TRIFLURIDINE
     Indication: CARCINOID TUMOUR
     Dosage: CYCLE 1
     Route: 048
     Dates: start: 20200428
  2. LONSURF [Suspect]
     Active Substance: TIPIRACIL HYDROCHLORIDE\TRIFLURIDINE
     Indication: COLORECTAL CANCER
     Dosage: CYCLE 2:DOSE AND FREQUENCY UNKNOWN
     Route: 048
     Dates: start: 20200608
  3. HUMALOG [Concomitant]
     Active Substance: INSULIN LISPRO
     Dosage: 100 /ML INJECTION
  4. METFORMIN [Concomitant]
     Active Substance: METFORMIN HYDROCHLORIDE
  5. METFORMIN [Concomitant]
     Active Substance: METFORMIN HYDROCHLORIDE
  6. TYLENOL [Concomitant]
     Active Substance: ACETAMINOPHEN
  7. HYDROCO/APAP [Concomitant]
     Active Substance: ACETAMINOPHEN\HYDROCODONE
     Dosage: 10-325 MG
  8. HYDROCODONE BITARTRA [Concomitant]
  9. HYDROCODONE BITARTRA [Concomitant]
  10. SIMVASTATIN. [Concomitant]
     Active Substance: SIMVASTATIN
  11. GABAPENTIN. [Concomitant]
     Active Substance: GABAPENTIN
  12. HYDROCODONE BITARTRA [Concomitant]
  13. HYDROCODONE BITARTRA [Concomitant]
     Dosage: CRYSTALS
  14. HUMALOG MIX [Concomitant]
     Active Substance: INSULIN LISPRO
  15. PIOGLITAZONE. [Concomitant]
     Active Substance: PIOGLITAZONE
  16. VITAMINS [Concomitant]
     Active Substance: VITAMINS

REACTIONS (9)
  - White blood cell count decreased [Not Recovered/Not Resolved]
  - Incorrect dosage administered [Unknown]
  - Red blood cell count decreased [Unknown]
  - Platelet count decreased [Not Recovered/Not Resolved]
  - Hot flush [Not Recovered/Not Resolved]
  - Peripheral swelling [Not Recovered/Not Resolved]
  - Hypoaesthesia [Not Recovered/Not Resolved]
  - Feeling cold [Not Recovered/Not Resolved]
  - Constipation [Not Recovered/Not Resolved]

NARRATIVE: CASE EVENT DATE: 20200505
